FAERS Safety Report 21781726 (Version 1)
Quarter: 2022Q4

REPORT INFORMATION
  Report Type: Report from Study
  Country: US (occurrence: US)
  Receive Date: 20221227
  Receipt Date: 20221227
  Transmission Date: 20230113
  Serious: No
  Sender: FDA-Public Use
  Company Number: US-ABBVIE-4186288

PATIENT
  Age: 67 Year
  Sex: Male

DRUGS (1)
  1. HUMIRA [Suspect]
     Active Substance: ADALIMUMAB
     Indication: Psoriatic arthropathy
     Route: 058

REACTIONS (6)
  - Spinal osteoarthritis [Unknown]
  - Ligament sprain [Unknown]
  - Thermal burn [Unknown]
  - Arthritis [Unknown]
  - Accident at work [Not Recovered/Not Resolved]
  - Grip strength decreased [Unknown]

NARRATIVE: CASE EVENT DATE: 20220901
